FAERS Safety Report 9866763 (Version 1)
Quarter: 2014Q1

REPORT INFORMATION
  Report Type: Spontaneous
  Country: US (occurrence: US)
  Receive Date: 20140204
  Receipt Date: 20140204
  Transmission Date: 20141002
  Serious: No
  Sender: FDA-Public Use
  Company Number: US-009507513-1401USA012338

PATIENT
  Sex: Female

DRUGS (2)
  1. NUVARING [Suspect]
     Indication: MIGRAINE PROPHYLAXIS
     Dosage: UNK
     Route: 067
     Dates: start: 2009
  2. NUVARING [Suspect]
     Dosage: 1 RING FOR 3 WEEKS, THEN INSERT A NEW ONE ON THE 4TH WEEK INSTEAD OF HAVING 1 WEEK RING FREE PERIOD
     Route: 067

REACTIONS (3)
  - Inappropriate schedule of drug administration [Unknown]
  - Off label use [Unknown]
  - No adverse event [Unknown]
